FAERS Safety Report 6920220-1 (Version None)
Quarter: 2010Q3

REPORT INFORMATION
  Report Type: 
  Country: None (occurrence: None)
  Receive Date: 20100809
  Receipt Date: 20100730
  Transmission Date: 20110219
  Serious: Yes (Other)
  Sender: FDA-Public Use
  Company Number: 2010SP041751

PATIENT
  Age: 36 Year
  Sex: Female
  Weight: 70.3075 kg

DRUGS (4)
  1. NUVARING [Suspect]
     Indication: CONTRACEPTION
     Dates: start: 20040701, end: 20050101
  2. NUVARING [Suspect]
     Indication: OVARIAN CYST
     Dates: start: 20040701, end: 20050101
  3. NUVARING [Suspect]
     Indication: CONTRACEPTION
     Dates: start: 20050401, end: 20070101
  4. NUVARING [Suspect]
     Indication: OVARIAN CYST
     Dates: start: 20050401, end: 20070101

REACTIONS (18)
  - ARTHRALGIA [None]
  - BASEDOW'S DISEASE [None]
  - BREAST DISORDER FEMALE [None]
  - CONTUSION [None]
  - DEEP VEIN THROMBOSIS [None]
  - DYSMENORRHOEA [None]
  - FAECES DISCOLOURED [None]
  - FATIGUE [None]
  - FEELING HOT [None]
  - HERPES ZOSTER [None]
  - HYPOAESTHESIA [None]
  - LIMB INJURY [None]
  - LIVER FUNCTION TEST ABNORMAL [None]
  - MUSCULOSKELETAL CHEST PAIN [None]
  - OVARIAN CYST [None]
  - THROMBOSIS [None]
  - UTERINE LEIOMYOMA [None]
  - UTERINE POLYP [None]
